FAERS Safety Report 7631859-2 (Version None)
Quarter: 2011Q3

REPORT INFORMATION
  Report Type: 
  Country: None (occurrence: None)
  Receive Date: 20110725
  Receipt Date: 20110418
  Transmission Date: 20111222
  Serious: No
  Sender: FDA-Public Use
  Company Number: US-BRISTOL-MYERS SQUIBB COMPANY-15681109

PATIENT
  Age: 67 Year
  Sex: Male

DRUGS (12)
  1. COUMADIN [Suspect]
  2. FLOMAX [Concomitant]
  3. METROGEL [Concomitant]
  4. CLONIDINE [Concomitant]
  5. DILTIAZEM HCL [Concomitant]
  6. FISH OIL [Concomitant]
  7. EXCEDRIN (MIGRAINE) [Concomitant]
  8. NYSTATIN [Concomitant]
  9. TETRACYCLINE [Concomitant]
  10. SPIRONOLACTONE [Concomitant]
  11. AMBIEN [Concomitant]
  12. LISINOPRIL [Concomitant]

REACTIONS (2)
  - CHROMATURIA [None]
  - ROSACEA [None]
